FAERS Safety Report 25290676 (Version 1)
Quarter: 2025Q2

REPORT INFORMATION
  Report Type: Spontaneous
  Country: IT (occurrence: IT)
  Receive Date: 20250510
  Receipt Date: 20250510
  Transmission Date: 20250717
  Serious: Yes (Other)
  Sender: ALEXION PHARMACEUTICALS
  Company Number: None

PATIENT
  Age: 21 Year
  Weight: 85 kg

DRUGS (2)
  1. SAPHNELO [Suspect]
     Active Substance: ANIFROLUMAB-FNIA
     Indication: Systemic lupus erythematosus
     Dosage: 300 MG/4 SETTIMANE ( UNICA SOMMINISTRAZIONE)
  2. SIROLIMUS [Concomitant]
     Active Substance: SIROLIMUS
     Indication: Autoimmune lymphoproliferative syndrome

REACTIONS (3)
  - Polyarthritis [Not Recovered/Not Resolved]
  - Joint swelling [Not Recovered/Not Resolved]
  - Erythema [Recovered/Resolved]
